FAERS Safety Report 6884538-3 (Version None)
Quarter: 2010Q3

REPORT INFORMATION
  Report Type: 
  Country: None (occurrence: None)
  Receive Date: 20100729
  Receipt Date: 20070712
  Transmission Date: 20110219
  Serious: Yes (Other)
  Sender: FDA-Public Use
  Company Number: US-PFIZER INC-2007058236

PATIENT
  Sex: Male
  Weight: 97.5 kg

DRUGS (1)
  1. CELEBREX [Suspect]
     Dosage: 200 MG
     Dates: start: 20050101

REACTIONS (2)
  - MYOCARDIAL INFARCTION [None]
  - TRANSIENT ISCHAEMIC ATTACK [None]
